FAERS Safety Report 10963440 (Version 1)
Quarter: 2015Q1

REPORT INFORMATION
  Report Type: Spontaneous
  Country: US (occurrence: None)
  Receive Date: 20150326
  Receipt Date: 20150326
  Transmission Date: 20150721
  Serious: Yes (Hospitalization)
  Sender: FDA-Public Use
  Company Number: PR 6231

PATIENT
  Age: 14 Day
  Sex: Female

DRUGS (4)
  1. CHIBRO-CADRON (DEXAMETHASONE SODIUM PHOSPHATE, NEOMYCIN SULFATE) [Concomitant]
  2. COSOPT [Suspect]
     Active Substance: DORZOLAMIDE HYDROCHLORIDE\TIMOLOL MALEATE
     Indication: EYE DISORDER
  3. STER-DEX (DEXAMETHASONE, OXYTETRACYCLINE) EYE OINTMENT [Concomitant]
  4. CYCLOSPORINE  EYE DROPS [Concomitant]

REACTIONS (4)
  - Staphylococcus test positive [None]
  - Rotavirus test positive [None]
  - Vomiting [None]
  - Diarrhoea [None]

NARRATIVE: CASE EVENT DATE: 201502
